FAERS Safety Report 12678755 (Version 1)
Quarter: 2016Q3

REPORT INFORMATION
  Report Type: Report from Study
  Country: US (occurrence: US)
  Receive Date: 20160824
  Receipt Date: 20160824
  Transmission Date: 20161109
  Serious: Yes (Hospitalization)
  Sender: FDA-Public Use
  Company Number: US-ABBVIE-16K-163-1704324-00

PATIENT
  Age: 19 Year
  Sex: Male
  Weight: 93.07 kg

DRUGS (4)
  1. DICYCLOMINE [Concomitant]
     Active Substance: DICYCLOMINE HYDROCHLORIDE
     Indication: CROHN^S DISEASE
  2. HUMIRA [Suspect]
     Active Substance: ADALIMUMAB
     Indication: CROHN^S DISEASE
     Route: 058
     Dates: start: 201411, end: 201502
  3. MULTIVITAMIN [Concomitant]
     Active Substance: VITAMINS
     Indication: VITAMIN SUPPLEMENTATION
  4. HUMIRA [Suspect]
     Active Substance: ADALIMUMAB
     Route: 058
     Dates: start: 201505

REACTIONS (4)
  - Intestinal obstruction [Recovered/Resolved]
  - Volvulus [Recovered/Resolved]
  - Erythema [Recovered/Resolved]
  - Skin disorder [Recovered/Resolved]

NARRATIVE: CASE EVENT DATE: 201502
